FAERS Safety Report 13819429 (Version 1)
Quarter: 2017Q3

REPORT INFORMATION
  Report Type: Report from Study
  Country: EC (occurrence: EC)
  Receive Date: 20170801
  Receipt Date: 20170801
  Transmission Date: 20171127
  Serious: Yes (Hospitalization)
  Sender: FDA-Public Use
  Company Number: PHHY2017EC111003

PATIENT
  Age: 62 Year
  Sex: Female

DRUGS (2)
  1. TASIGNA [Suspect]
     Active Substance: NILOTINIB
     Indication: CHRONIC MYELOID LEUKAEMIA
     Dosage: 400 MG, BID
     Route: 048
     Dates: start: 20160905
  2. TASIGNA [Suspect]
     Active Substance: NILOTINIB
     Dosage: 200 MG, BID
     Route: 048
     Dates: start: 20170711

REACTIONS (5)
  - Eye irritation [Unknown]
  - Cataract [Unknown]
  - Ear discomfort [Unknown]
  - Visual impairment [Unknown]
  - Malaise [Unknown]

NARRATIVE: CASE EVENT DATE: 20161125
